FAERS Safety Report 11101778 (Version 1)
Quarter: 2015Q2

REPORT INFORMATION
  Report Type: Report from Study
  Country: CA (occurrence: CA)
  Receive Date: 20150509
  Receipt Date: 20150509
  Transmission Date: 20150821
  Serious: Yes (Other)
  Sender: FDA-Public Use
  Company Number: CA-ROCHE-1517767

PATIENT
  Age: 66 Year
  Sex: Female

DRUGS (7)
  1. LOVENOX [Concomitant]
     Active Substance: ENOXAPARIN SODIUM
  2. AVASTIN [Suspect]
     Active Substance: BEVACIZUMAB
     Route: 042
     Dates: start: 20150202, end: 20150408
  3. NOVORAPID [Concomitant]
     Active Substance: INSULIN ASPART
  4. RANITIDINE [Concomitant]
     Active Substance: RANITIDINE\RANITIDINE HYDROCHLORIDE
  5. DECADRON [Concomitant]
     Active Substance: DEXAMETHASONE
  6. AMLODIPINE [Concomitant]
     Active Substance: AMLODIPINE BESYLATE
  7. AVASTIN [Suspect]
     Active Substance: BEVACIZUMAB
     Indication: GLIOBLASTOMA
     Route: 042
     Dates: start: 20141219

REACTIONS (13)
  - Hypotension [Unknown]
  - Somnolence [Recovered/Resolved]
  - Wound secretion [Not Recovered/Not Resolved]
  - Oedema [Unknown]
  - Body temperature increased [Unknown]
  - Urinary tract infection [Recovered/Resolved]
  - Somnolence [Unknown]
  - Infusion related reaction [Unknown]
  - Nitrituria [Not Recovered/Not Resolved]
  - Hypoaesthesia [Unknown]
  - Body temperature decreased [Unknown]
  - Heart rate increased [Unknown]
  - Malignant neoplasm progression [Unknown]

NARRATIVE: CASE EVENT DATE: 2015
